FAERS Safety Report 21732445 (Version 1)
Quarter: 2022Q4

REPORT INFORMATION
  Report Type: Spontaneous
  Country: US (occurrence: US)
  Receive Date: 20221215
  Receipt Date: 20221215
  Transmission Date: 20230112
  Serious: Yes (Other)
  Sender: FDA-Public Use
  Company Number: US-JAZZ-2022-US-011200

PATIENT
  Age: 28 Year
  Sex: Female
  Weight: 2.270 kg

DRUGS (8)
  1. SUNOSI [Suspect]
     Active Substance: SOLRIAMFETOL
     Indication: Narcolepsy
     Dosage: 75 MILLIGRAM, QD
     Route: 048
     Dates: start: 20220217
  2. SUNOSI [Suspect]
     Active Substance: SOLRIAMFETOL
     Dosage: 75 MILLIGRAM, QD
     Route: 048
     Dates: start: 20220217
  3. PROVIGIL [Concomitant]
     Active Substance: MODAFINIL
     Indication: Pregnancy
     Dosage: 325 MILLIGRAM, QD
     Route: 048
     Dates: start: 20220404
  4. MINERALS\VITAMINS [Concomitant]
     Active Substance: MINERALS\VITAMINS
     Indication: Pregnancy
     Dosage: UNK, QD
     Route: 048
     Dates: start: 20220404
  5. VITAMIN B12 [Concomitant]
     Active Substance: CYANOCOBALAMIN
     Indication: Nausea
     Dosage: 25 MILLIGRAM, BID
     Route: 048
     Dates: start: 20220404
  6. IRON [Concomitant]
     Active Substance: IRON
     Indication: Pregnancy
     Dates: start: 20220404
  7. VITAMIN B6 [Concomitant]
     Active Substance: PYRIDOXINE HYDROCHLORIDE
     Dates: start: 20220404, end: 20221011
  8. UNISOM SLEEPTABS [Concomitant]
     Active Substance: DOXYLAMINE SUCCINATE
     Dates: start: 20220404, end: 20221011

REACTIONS (7)
  - Nonreassuring foetal heart rate pattern [Recovered/Resolved]
  - Premature baby [Not Recovered/Not Resolved]
  - Polyhydramnios [Recovered/Resolved]
  - Uterine leiomyoma [Not Recovered/Not Resolved]
  - Pre-eclampsia [Recovered/Resolved]
  - Nausea [Recovered/Resolved]
  - Exposure during pregnancy [None]

NARRATIVE: CASE EVENT DATE: 20220404
